FAERS Safety Report 9522416 (Version 1)
Quarter: 2013Q1

REPORT INFORMATION
  Report Type: Spontaneous
  Country: US (occurrence: None)
  Receive Date: 20130305
  Receipt Date: 20130305
  Transmission Date: 20140127
  Serious: Yes (Other)
  Sender: FDA-Public Use
  Company Number: 163-21880-12070660

PATIENT
  Age: 72 Year
  Sex: Female
  Weight: 65.77 kg

DRUGS (4)
  1. REVLIMID [Suspect]
     Indication: PLASMA CELL MYELOMA
     Dosage: 5MG DAILY FOR 4DAYS THEN 10MG FOR 3 DAYS, 28 IN 28 D, PO
     Route: 048
     Dates: start: 20090716
  2. VELCADE [Suspect]
  3. PROCRIT [Concomitant]
  4. ZOMETA (ZOLEDRONIC ACID) (UNKNOWN) [Concomitant]

REACTIONS (3)
  - Neuropathy peripheral [None]
  - Vertigo [None]
  - Dizziness [None]
